FAERS Safety Report 13267017 (Version 1)
Quarter: 2017Q1

REPORT INFORMATION
  Report Type: Spontaneous
  Country: GB (occurrence: GB)
  Receive Date: 20170224
  Receipt Date: 20170224
  Transmission Date: 20170428
  Serious: Yes (Hospitalization, Other)
  Sender: FDA-Public Use
  Company Number: GB-BAUSCH-BL-2017-004513

PATIENT
  Age: 77 Year
  Sex: Male

DRUGS (4)
  1. CIDOMYCIN [Suspect]
     Active Substance: GENTAMICIN SULFATE
     Indication: INHALATION THERAPY
  2. GABAPENTIN. [Suspect]
     Active Substance: GABAPENTIN
     Indication: NEURALGIA
     Route: 065
  3. CIDOMYCIN [Suspect]
     Active Substance: GENTAMICIN SULFATE
     Indication: BRONCHIECTASIS
     Dosage: OVER 10 YEARS
     Route: 065
  4. DILTIAZEM HYDROCHLORIDE. [Suspect]
     Active Substance: DILTIAZEM HYDROCHLORIDE
     Indication: CARDIAC DISORDER
     Route: 065

REACTIONS (11)
  - Neuralgia [Unknown]
  - Fungal infection [Unknown]
  - Primary cough headache [Unknown]
  - Lower respiratory tract infection [Unknown]
  - Confusional state [Unknown]
  - Somnolence [Unknown]
  - Dizziness [Unknown]
  - Fatigue [Unknown]
  - Depression [Unknown]
  - Intentional product use issue [Unknown]
  - Atrial fibrillation [Unknown]

NARRATIVE: CASE EVENT DATE: 2015
